FAERS Safety Report 8103816-3 (Version None)
Quarter: 2012Q1

REPORT INFORMATION
  Report Type: 
  Country: None (occurrence: None)
  Receive Date: 20120201
  Receipt Date: 20120127
  Transmission Date: 20120608
  Serious: Yes (Other)
  Sender: FDA-Public Use
  Company Number: ZA-JNJFOC-20120110884

PATIENT
  Sex: Female
  Weight: 54 kg

DRUGS (1)
  1. NICOTINE [Suspect]
     Indication: SMOKING CESSATION THERAPY
     Dosage: FIVES PIECES PER DAY BROKEN INTO QUARTER PIECES, LARGE QUANTITIES FOR THREE YEARS
     Route: 048
     Dates: start: 20090101

REACTIONS (8)
  - OROPHARYNGEAL PAIN [None]
  - SALIVARY GLAND ENLARGEMENT [None]
  - INTENTIONAL DRUG MISUSE [None]
  - SALIVARY GLAND PAIN [None]
  - WRONG TECHNIQUE IN DRUG USAGE PROCESS [None]
  - JAW DISORDER [None]
  - DEPENDENCE [None]
  - PHARYNGEAL ERYTHEMA [None]
